FAERS Safety Report 7368948-6 (Version None)
Quarter: 2011Q1

REPORT INFORMATION
  Report Type: 
  Country: None (occurrence: None)
  Receive Date: 20110323
  Receipt Date: 20110310
  Transmission Date: 20110831
  Serious: Yes (Other)
  Sender: FDA-Public Use
  Company Number: US-JNJFOC-20110305213

PATIENT
  Sex: Female
  Weight: 89.36 kg

DRUGS (9)
  1. REMICADE [Suspect]
     Indication: RHEUMATOID ARTHRITIS
     Route: 042
  2. UNSPECIFIED DEPRESSION MEDICATION [Concomitant]
     Indication: DEPRESSION
     Route: 048
  3. LISINOPRIL [Concomitant]
     Indication: BLOOD PRESSURE
     Route: 048
  4. NORVASC [Concomitant]
     Indication: BLOOD PRESSURE
     Route: 048
  5. METHOTREXATE [Concomitant]
     Indication: RHEUMATOID ARTHRITIS
     Route: 048
  6. METFORMIN [Concomitant]
     Indication: DIABETES MELLITUS
     Route: 048
  7. CELEBREX [Concomitant]
     Indication: RHEUMATOID ARTHRITIS
     Route: 048
  8. INSULIN [Concomitant]
     Indication: DIABETES MELLITUS
     Route: 050
  9. PREDNISONE [Concomitant]
     Indication: INFLAMMATION
     Route: 048

REACTIONS (4)
  - DIPLOPIA [None]
  - VISION BLURRED [None]
  - TENDONITIS [None]
  - BLOOD PRESSURE INCREASED [None]
